FAERS Safety Report 6754464-9 (Version None)
Quarter: 2010Q2

REPORT INFORMATION
  Report Type: 
  Country: None (occurrence: None)
  Receive Date: 20100603
  Receipt Date: 20100526
  Transmission Date: 20101027
  Serious: Yes (Hospitalization)
  Sender: FDA-Public Use
  Company Number: DE-TEVA-234009ISR

PATIENT
  Sex: Male
  Weight: 51 kg

DRUGS (4)
  1. PANTOPRAZOLE [Interacting]
     Indication: GASTRIC ULCER HAEMORRHAGE
     Route: 048
     Dates: start: 20090801
  2. ACETYLSALICYLIC ACID [Interacting]
     Indication: ISCHAEMIC HEART DISEASE PROPHYLAXIS
     Route: 048
     Dates: start: 20090801
  3. CEFOTIAM HYDROCHLORIDE [Suspect]
     Indication: PNEUMONIA
     Route: 041
     Dates: start: 20090831, end: 20090903
  4. METRONIDAZOLE [Suspect]
     Indication: PNEUMONIA
     Route: 048
     Dates: start: 20090828, end: 20090904

REACTIONS (2)
  - CLOSTRIDIUM DIFFICILE COLITIS [None]
  - DRUG INTERACTION [None]
